FAERS Safety Report 4501891-6 (Version None)
Quarter: 2004Q4

REPORT INFORMATION
  Report Type: 
  Country: None (occurrence: None)
  Receive Date: 20041115
  Receipt Date: 20041115
  Transmission Date: 20050328
  Serious: Yes (Hospitalization)
  Sender: FDA-Public Use
  Company Number: None

PATIENT
  Age: 80 Year
  Sex: Male
  Weight: 70.8 kg

DRUGS (10)
  1. RISPERIDONE [Suspect]
     Indication: PSYCHOTIC DISORDER
     Dosage: 0.5 MG QH, 0.5 MG QH ORAL
     Route: 048
     Dates: start: 20040518
  2. RISPERIDONE [Suspect]
  3. HEPARIN [Concomitant]
  4. PHENYTOIN SUSP SUSP [Concomitant]
  5. TEMAZEPAM [Concomitant]
  6. OMEPRAZOLE [Concomitant]
  7. LACTULOSE [Concomitant]
  8. CLOPIDOGREL BISULFATE [Concomitant]
  9. ASPIRIN [Concomitant]
  10. BENZOTROPINE [Concomitant]

REACTIONS (1)
  - DYSTONIA [None]
